FAERS Safety Report 7052546-8 (Version None)
Quarter: 2010Q4

REPORT INFORMATION
  Report Type: 
  Country: None (occurrence: None)
  Receive Date: 20101019
  Receipt Date: 20101007
  Transmission Date: 20110411
  Serious: Yes (Other)
  Sender: FDA-Public Use
  Company Number: JP-PFIZER INC-2010127810

PATIENT
  Sex: Female

DRUGS (2)
  1. XALATAN [Suspect]
     Dosage: 1 DROP/DAY ONCE DAILY
     Route: 047
  2. ROHYPNOL [Concomitant]
     Dosage: UNK
     Dates: start: 20100801

REACTIONS (2)
  - DIZZINESS [None]
  - MENIERE'S DISEASE [None]
